FAERS Safety Report 9017618 (Version 1)
Quarter: 2013Q1

REPORT INFORMATION
  Report Type: Spontaneous
  Country: BR (occurrence: BR)
  Receive Date: 20130117
  Receipt Date: 20130117
  Transmission Date: 20140127
  Serious: Yes (Hospitalization)
  Sender: FDA-Public Use
  Company Number: BR-B.I. PHARMACEUTICALS,INC./RIDGEFIELD-2013-BR-00031BR

PATIENT
  Age: 74 Year
  Sex: Male
  Weight: 91 kg

DRUGS (5)
  1. PRADAXA [Suspect]
     Indication: ANTICOAGULANT THERAPY
     Route: 048
  2. GALVUS [Suspect]
     Indication: ARRHYTHMIA
     Route: 048
  3. NEXIUM [Suspect]
     Indication: ABDOMINAL DISCOMFORT
     Dosage: 40 MG
     Route: 048
     Dates: end: 201211
  4. CRESTOR [Suspect]
     Indication: BLOOD CHOLESTEROL INCREASED
     Dosage: 40 MG
     Route: 048
  5. ASPIRIN PREVENT [Concomitant]

REACTIONS (4)
  - Arrhythmia [Recovered/Resolved]
  - Increased upper airway secretion [Unknown]
  - Nausea [Unknown]
  - Blood cholesterol increased [Unknown]
